FAERS Safety Report 13554006 (Version 1)
Quarter: 2017Q2

REPORT INFORMATION
  Report Type: Spontaneous
  Country: US (occurrence: US)
  Receive Date: 20170517
  Receipt Date: 20170517
  Transmission Date: 20170830
  Serious: No
  Sender: FDA-Public Use
  Company Number: US-TAKEDA-2017TUS010256

PATIENT
  Sex: Female

DRUGS (1)
  1. DEXILANT [Suspect]
     Active Substance: DEXLANSOPRAZOLE
     Indication: IMPAIRED GASTRIC EMPTYING
     Dosage: UNK
     Route: 048

REACTIONS (4)
  - Off label use [Unknown]
  - Impaired work ability [Unknown]
  - Feeling abnormal [Unknown]
  - Decreased appetite [Unknown]
